FAERS Safety Report 16971798 (Version 1)
Quarter: 2019Q4

REPORT INFORMATION
  Report Type: Spontaneous
  Country: US (occurrence: US)
  Receive Date: 20191029
  Receipt Date: 20191029
  Transmission Date: 20200122
  Serious: No
  Sender: FDA-Public Use
  Company Number: US-SA-2019SA297945

PATIENT
  Sex: Female
  Weight: 80.27 kg

DRUGS (2)
  1. DUPIXENT [Suspect]
     Active Substance: DUPILUMAB
     Dosage: 300 MG, QOW
     Route: 058
     Dates: start: 201810
  2. PROLIA [Concomitant]
     Active Substance: DENOSUMAB

REACTIONS (4)
  - Skin exfoliation [Unknown]
  - Pruritus [Unknown]
  - Product dose omission [Unknown]
  - Eye pruritus [Unknown]
